FAERS Safety Report 11068732 (Version 1)
Quarter: 2015Q2

REPORT INFORMATION
  Report Type: Spontaneous
  Country: US (occurrence: US)
  Receive Date: 20150427
  Receipt Date: 20150427
  Transmission Date: 20150821
  Serious: Yes (Hospitalization)
  Sender: FDA-Public Use
  Company Number: US-JNJFOC-20150415366

PATIENT
  Sex: Female
  Weight: 102 kg

DRUGS (16)
  1. GABAPENTIN. [Concomitant]
     Active Substance: GABAPENTIN
     Route: 048
  2. REVATIO [Concomitant]
     Active Substance: SILDENAFIL CITRATE
     Route: 048
  3. TIZANIDINE (TIZANIDINE) [Concomitant]
     Active Substance: TIZANIDINE
     Route: 048
  4. POTASSIUM CHLORIDE. [Concomitant]
     Active Substance: POTASSIUM CHLORIDE
     Route: 065
  5. MORPHINE [Concomitant]
     Active Substance: MORPHINE
     Indication: DYSPNOEA
     Dosage: AS NECESSARY
     Route: 048
  6. TYVASO [Concomitant]
     Active Substance: TREPROSTINIL
     Route: 065
  7. XARELTO [Suspect]
     Active Substance: RIVAROXABAN
     Indication: PULMONARY EMBOLISM
     Route: 048
  8. QVAR [Concomitant]
     Active Substance: BECLOMETHASONE DIPROPIONATE
     Dosage: 2 PUFFS
     Route: 065
  9. SPIRONOLACTONE. [Concomitant]
     Active Substance: SPIRONOLACTONE
     Route: 048
  10. TYLENOL [Concomitant]
     Active Substance: ACETAMINOPHEN
     Dosage: AS NEEDED
     Route: 065
  11. RANITIDINE [Concomitant]
     Active Substance: RANITIDINE\RANITIDINE HYDROCHLORIDE
     Route: 048
  12. EFFEXOR [Concomitant]
     Active Substance: VENLAFAXINE HYDROCHLORIDE
     Route: 065
  13. ZYRTEC [Concomitant]
     Active Substance: CETIRIZINE HYDROCHLORIDE
     Route: 048
  14. LETAIRIS [Concomitant]
     Active Substance: AMBRISENTAN
     Route: 048
  15. FLONASE [Concomitant]
     Active Substance: FLUTICASONE PROPIONATE
     Dosage: AS NEEDED
     Route: 065
  16. BUMEX [Concomitant]
     Active Substance: BUMETANIDE
     Route: 065

REACTIONS (9)
  - Pulmonary arterial hypertension [Unknown]
  - Decreased appetite [Unknown]
  - Rhinorrhoea [Unknown]
  - Vomiting [Unknown]
  - Fluid overload [Unknown]
  - Productive cough [Unknown]
  - Sneezing [Unknown]
  - Lacrimation increased [Unknown]
  - Urine output decreased [Unknown]
